FAERS Safety Report 11659923 (Version 1)
Quarter: 2015Q4

REPORT INFORMATION
  Report Type: Spontaneous
  Country: PL (occurrence: PL)
  Receive Date: 20151026
  Receipt Date: 20151026
  Transmission Date: 20160304
  Serious: Yes (Other)
  Sender: FDA-Public Use
  Company Number: PL-PFIZER INC-2015349740

PATIENT
  Sex: Male
  Weight: 3.01 kg

DRUGS (8)
  1. DYDROGESTERONE [Concomitant]
     Active Substance: DYDROGESTERONE
     Dosage: 60 MG, DAILY
     Route: 064
  2. HYDROXYPROGESTERONE CAPROATE. [Concomitant]
     Active Substance: HYDROXYPROGESTERONE CAPROATE
     Indication: CONGENITAL UTERINE ANOMALY
     Dosage: 250 MG, 4-D INTERVALS
     Route: 064
  3. GLIPIZIDE. [Suspect]
     Active Substance: GLIPIZIDE
     Indication: NEONATAL DIABETES MELLITUS
     Dosage: 30 MG (0.55 MG/KG)
     Route: 064
  4. INSULIN, REGULAR [Suspect]
     Active Substance: INSULIN NOS
     Indication: NEONATAL DIABETES MELLITUS
     Dosage: 3 SHOTS, DAILY
  5. DYDROGESTERONE [Concomitant]
     Active Substance: DYDROGESTERONE
     Indication: CONGENITAL UTERINE ANOMALY
     Dosage: 30 MG, DAILY
     Route: 064
  6. NPH INSULIN [Suspect]
     Active Substance: INSULIN BEEF
     Indication: NEONATAL DIABETES MELLITUS
     Dosage: 1 INJECTION, DAILY
     Route: 064
  7. METHYLDOPA. [Concomitant]
     Active Substance: METHYLDOPA
     Indication: HYPERTENSION
     Dosage: UNK
     Route: 064
  8. GLIBENCLAMIDE [Suspect]
     Active Substance: GLYBURIDE
     Indication: NEONATAL DIABETES MELLITUS
     Dosage: 40 MG/DAY (0.62 MG/KG)
     Route: 064

REACTIONS (6)
  - Hypoglycaemia [Recovered/Resolved]
  - Tachypnoea [Recovered/Resolved]
  - Oedema peripheral [Recovered/Resolved]
  - Maternal exposure during pregnancy [Recovered/Resolved]
  - Diabetic foetopathy [Recovered/Resolved]
  - Hyperbilirubinaemia [Recovered/Resolved]
